FAERS Safety Report 24867949 (Version 1)
Quarter: 2025Q1

REPORT INFORMATION
  Report Type: Spontaneous
  Country: US (occurrence: US)
  Receive Date: 20250121
  Receipt Date: 20250121
  Transmission Date: 20250408
  Serious: No
  Sender: TORRENT PHARMA INC.
  Company Number: US-TORRENT-00013953

PATIENT
  Age: 41 Year
  Sex: Female

DRUGS (1)
  1. DICHLORPHENAMIDE [Suspect]
     Active Substance: DICHLORPHENAMIDE
     Indication: Paralysis
     Route: 065

REACTIONS (1)
  - Adverse drug reaction [Unknown]
